FAERS Safety Report 4402941-8 (Version None)
Quarter: 2004Q3

REPORT INFORMATION
  Report Type: 
  Country: None (occurrence: None)
  Receive Date: 20040721
  Receipt Date: 20030707
  Transmission Date: 20050211
  Serious: No
  Sender: FDA-Public Use
  Company Number: US-GLAXOSMITHKLINE-A0415770A

PATIENT
  Age: 56 Year
  Sex: Female

DRUGS (3)
  1. IMITREX [Suspect]
     Indication: MIGRAINE
     Dosage: 12.5MG UNKNOWN
     Route: 048
  2. TOPROL-XL [Suspect]
     Indication: ILL-DEFINED DISORDER
     Dosage: 12.5MG UNKNOWN
     Route: 065
  3. EPINEPHRINE [Suspect]
     Route: 042

REACTIONS (3)
  - BLOOD POTASSIUM DECREASED [None]
  - HEADACHE [None]
  - HYPERTENSION [None]
